FAERS Safety Report 9341408 (Version 2)
Quarter: 2013Q2

REPORT INFORMATION
  Report Type: Spontaneous
  Country: DK (occurrence: DK)
  Receive Date: 20130611
  Receipt Date: 20130612
  Transmission Date: 20140414
  Serious: No
  Sender: FDA-Public Use
  Company Number: DK-US-EMD SERONO, INC.-E2B_7216729

PATIENT
  Sex: Female

DRUGS (2)
  1. REBIF [Suspect]
     Indication: MULTIPLE SCLEROSIS
     Dates: end: 200509
  2. FINGOLIMOD [Suspect]
     Indication: MULTIPLE SCLEROSIS
     Dates: start: 20110906, end: 201111

REACTIONS (3)
  - Alopecia [Unknown]
  - Vomiting [Unknown]
  - Tooth loss [Unknown]
